FAERS Safety Report 7862052-6 (Version None)
Quarter: 2011Q4

REPORT INFORMATION
  Report Type: 
  Country: None (occurrence: None)
  Receive Date: 20111025
  Receipt Date: 20111017
  Transmission Date: 20120403
  Serious: Yes (Hospitalization)
  Sender: FDA-Public Use
  Company Number: FK201102278

PATIENT
  Age: 68 Year
  Sex: Female

DRUGS (12)
  1. VELCADE [Suspect]
     Indication: MULTIPLE MYELOMA
     Dosage: 3.2 MG, EVERY WEEK INTRAVENOUS
     Route: 042
     Dates: start: 20110412, end: 20110713
  2. TRIAMTERENE [Concomitant]
  3. HYDROCODONE BITARTRATE [Concomitant]
  4. ACETAMINOPHEN [Concomitant]
  5. HYDROCHLOROTHIAZIDE [Concomitant]
  6. AMLODIPINE [Concomitant]
  7. COLACE (DOCUSATE SODIUM) [Concomitant]
  8. DEXAMETHASONE SODIUM PHOSPHATE [Suspect]
     Indication: MULTIPLE MYELOMA
     Dosage: 20 MG, DAILY, INTRAVENOUS (NOT OTHERWISE SPECIFIED)
     Route: 042
     Dates: start: 20110404, end: 20110713
  9. LEVAQUIN [Concomitant]
  10. PROTONIX [Concomitant]
  11. RENVELA [Concomitant]
  12. CLINDAMYCIN [Concomitant]

REACTIONS (2)
  - MUCOSAL INFLAMMATION [None]
  - PNEUMONIA [None]
